FAERS Safety Report 6386030-1 (Version None)
Quarter: 2009Q4

REPORT INFORMATION
  Report Type: 
  Country: None (occurrence: None)
  Receive Date: 20091002
  Receipt Date: 20081030
  Transmission Date: 20100525
  Serious: No
  Sender: FDA-Public Use
  Company Number: US-ASTRAZENECA-2008UW24343

PATIENT
  Age: 63 Year
  Sex: Female

DRUGS (7)
  1. ARIMIDEX [Suspect]
     Route: 048
     Dates: start: 20040101
  2. EFFEXOR [Concomitant]
  3. ZIAC [Concomitant]
  4. PRAVASTATIN [Concomitant]
  5. FLAXSEED OIL [Concomitant]
  6. CALCIUM [Concomitant]
  7. MULTI-VITAMINS [Concomitant]

REACTIONS (1)
  - AMNESIA [None]
